FAERS Safety Report 15936660 (Version 1)
Quarter: 2019Q1

REPORT INFORMATION
  Report Type: Spontaneous
  Country: US (occurrence: US)
  Receive Date: 20190208
  Receipt Date: 20190208
  Transmission Date: 20190417
  Serious: No
  Sender: FDA-Public Use
  Company Number: US-ASTRAZENECA-2005BM01588

PATIENT
  Age: 20196 Day
  Sex: Female
  Weight: 77.1 kg

DRUGS (12)
  1. BYDUREON [Suspect]
     Active Substance: EXENATIDE
     Indication: TYPE 2 DIABETES MELLITUS
     Dosage: 2 MG WEEK
     Route: 058
     Dates: start: 201706, end: 201806
  2. OGEN [Concomitant]
     Active Substance: ESTROPIPATE
     Dosage: UNK
  3. BYETTA [Suspect]
     Active Substance: EXENATIDE
     Indication: TYPE 2 DIABETES MELLITUS
     Route: 058
     Dates: start: 20050817
  4. MEVACOR [Concomitant]
     Active Substance: LOVASTATIN
     Dosage: UNK
  5. ANTIVERT ^PFIZER^ [Concomitant]
     Dosage: UNK
  6. PAMELOR [Concomitant]
     Active Substance: NORTRIPTYLINE HYDROCHLORIDE
     Dosage: UNK
  7. GLUCOPHAGE ^BRISTOL-MYERS SQUIBB^ [Concomitant]
     Indication: TYPE 2 DIABETES MELLITUS
     Dosage: 1000 UNK, BID
     Dates: start: 2000
  8. VASOTEC [Concomitant]
     Active Substance: ENALAPRIL MALEATE
     Dosage: UNK
  9. DYAZIDE [Concomitant]
     Active Substance: HYDROCHLOROTHIAZIDE\TRIAMTERENE
     Dosage: UNK
  10. TRICOR [Concomitant]
     Active Substance: FENOFIBRATE
     Indication: BLOOD CHOLESTEROL ABNORMAL
     Dosage: 145 MG, QD
     Dates: start: 20050830, end: 20050905
  11. BYETTA [Suspect]
     Active Substance: EXENATIDE
     Indication: TYPE 2 DIABETES MELLITUS
     Dosage: UNK
     Route: 058
     Dates: start: 20050716, end: 201706
  12. BYDUREON BCISE [Suspect]
     Active Substance: EXENATIDE
     Indication: TYPE 2 DIABETES MELLITUS
     Dosage: 2 MG WEEK
     Route: 058
     Dates: start: 201806

REACTIONS (6)
  - Photosensitivity reaction [Not Recovered/Not Resolved]
  - Injection site mass [Recovered/Resolved]
  - Blood magnesium decreased [Recovered/Resolved]
  - Rash papular [Not Recovered/Not Resolved]
  - Urticaria [Not Recovered/Not Resolved]
  - Contusion [Recovered/Resolved]

NARRATIVE: CASE EVENT DATE: 20050830
